FAERS Safety Report 4886375-8 (Version None)
Quarter: 2006Q1

REPORT INFORMATION
  Report Type: 
  Country: None (occurrence: None)
  Receive Date: 20060120
  Receipt Date: 20051005
  Transmission Date: 20060701
  Serious: Yes (Hospitalization, Other)
  Sender: FDA-Public Use
  Company Number: US-MERCK-0510USA04310

PATIENT
  Age: 73 Year
  Sex: Female
  Weight: 86 kg

DRUGS (1)
  1. VIOXX [Suspect]
     Indication: ARTHRITIS
     Route: 048
     Dates: end: 20030101

REACTIONS (7)
  - ARTHROPATHY [None]
  - CARDIAC DISORDER [None]
  - CAROTID ARTERY DISEASE [None]
  - DEHYDRATION [None]
  - FOOD POISONING [None]
  - LUNG DISORDER [None]
  - MYOCARDIAL INFARCTION [None]
